FAERS Safety Report 7524949-6 (Version None)
Quarter: 2011Q2

REPORT INFORMATION
  Report Type: 
  Country: None (occurrence: None)
  Receive Date: 20110606
  Receipt Date: 20110523
  Transmission Date: 20111010
  Serious: Yes (Hospitalization)
  Sender: FDA-Public Use
  Company Number: US-ELI_LILLY_AND_COMPANY-US201103006376

PATIENT
  Sex: Female

DRUGS (7)
  1. SEROQUEL [Concomitant]
  2. CYMBALTA [Suspect]
     Indication: PAIN
     Dosage: 120 MG, QD
     Route: 048
     Dates: start: 20070613
  3. PREDNISONE [Interacting]
     Dosage: 40 MG, QD
  4. PREDNISONE [Interacting]
     Dosage: 10 MG, QD
  5. PREDNISONE [Interacting]
     Dosage: 20 MG, QD
  6. GABAPENTIN [Concomitant]
  7. PREDNISONE [Interacting]
     Dosage: 60 MG, QD

REACTIONS (4)
  - VERBAL ABUSE [None]
  - DRUG INTERACTION [None]
  - AGGRESSION [None]
  - PSYCHOTIC DISORDER [None]
